FAERS Safety Report 8555531-X (Version None)
Quarter: 2012Q3

REPORT INFORMATION
  Report Type: 
  Country: None (occurrence: None)
  Receive Date: 20120731
  Receipt Date: 20111205
  Transmission Date: 20120928
  Serious: No
  Sender: FDA-Public Use
  Company Number: US-ASTRAZENECA-2009SE28719

PATIENT
  Age: 54 Year
  Sex: Female
  Weight: 69 kg

DRUGS (9)
  1. LYRICA [Concomitant]
     Indication: RESTLESS LEGS SYNDROME
  2. SIMPONI INJECTION [Concomitant]
     Indication: PSORIASIS
  3. SEROQUEL XR [Suspect]
     Indication: BIPOLAR DISORDER
     Route: 048
  4. SEROQUEL XR [Suspect]
     Route: 048
     Dates: start: 20090101
  5. BONIVA [Concomitant]
  6. AMBIEN [Concomitant]
     Indication: SLEEP DISORDER
  7. HYDROCODONE [Concomitant]
     Indication: ARTHRITIS
  8. LYRICA [Concomitant]
     Indication: NEURALGIA
  9. FOSAMAX [Concomitant]
     Indication: OSTEOPOROSIS

REACTIONS (11)
  - DRUG DOSE OMISSION [None]
  - DRUG WITHDRAWAL SYNDROME [None]
  - INSOMNIA [None]
  - CONFUSIONAL STATE [None]
  - COLD SWEAT [None]
  - CHILLS [None]
  - IRRITABILITY [None]
  - HYPERHIDROSIS [None]
  - PILOERECTION [None]
  - ANXIETY [None]
  - OFF LABEL USE [None]
